FAERS Safety Report 23226502 (Version 2)
Quarter: 2024Q1

REPORT INFORMATION
  Report Type: Spontaneous
  Country: GB (occurrence: GB)
  Receive Date: 20231124
  Receipt Date: 20240221
  Transmission Date: 20240410
  Serious: Yes (Hospitalization, Other)
  Sender: FDA-Public Use
  Company Number: GB-Merck Healthcare KGaA-2023486663

PATIENT
  Age: 33 Year
  Sex: Female

DRUGS (3)
  1. METFORMIN HYDROCHLORIDE [Suspect]
     Active Substance: METFORMIN HYDROCHLORIDE
     Indication: Gestational diabetes
     Dosage: DOSAGE TEXT: 1G TWICE A DAY
     Route: 065
  2. HUMALOG [Suspect]
     Active Substance: INSULIN LISPRO
     Indication: Gestational diabetes
     Dosage: DOSAGE TEXT: 24 INTERNATIONAL UNIT(S), 3 EVERY 1 DAY WITH MEALS
     Route: 065
  3. INSULIN HUMAN [Suspect]
     Active Substance: INSULIN HUMAN
     Indication: Gestational diabetes
     Dosage: DOSAGE TEXT: 54 INTERNATIONAL UNIT(S), 2 EVERY 1 DAY
     Route: 065

REACTIONS (5)
  - Hypoglycaemia [Not Recovered/Not Resolved]
  - Insulinoma [Unknown]
  - Blood insulin increased [Recovering/Resolving]
  - Insulin C-peptide decreased [Unknown]
  - Maternal exposure during pregnancy [Unknown]
